FAERS Safety Report 6672631-X (Version None)
Quarter: 2010Q2

REPORT INFORMATION
  Report Type: 
  Country: None (occurrence: None)
  Receive Date: 20100406
  Receipt Date: 20100325
  Transmission Date: 20101027
  Serious: Yes (Life-Threatening, Hospitalization, Disabling, Other)
  Sender: FDA-Public Use
  Company Number: 006588

PATIENT
  Sex: Male
  Weight: 119 kg

DRUGS (20)
  1. METOLAZONE [Suspect]
  2. ALISKIREN [Suspect]
     Indication: CARDIOVASCULAR DISORDER
     Dates: start: 20091009, end: 20091226
  3. LASIX [Suspect]
  4. VICODIN [Concomitant]
  5. ECOTRIN [Concomitant]
  6. DOXAZOSIN [Concomitant]
  7. LESCOL XL [Concomitant]
  8. FOLIC ACID [Concomitant]
  9. FUROSEMIDE [Concomitant]
  10. GLIPIZIDE [Concomitant]
  11. HYDROCHLOROTHTIAZIDE W/TRIAMTERENE [Concomitant]
  12. MAGNESIUM OXIDE [Concomitant]
  13. METOLAZONE [Concomitant]
  14. METOPROLOL TARTRATE [Concomitant]
  15. KLOR-CON [Concomitant]
  16. LYRICA [Concomitant]
  17. ALTACE [Concomitant]
  18. CIMETIDINE [Concomitant]
  19. SELENIUM [Concomitant]
  20. COENZYME Q10 [Concomitant]

REACTIONS (16)
  - ACUTE CORONARY SYNDROME [None]
  - ACUTE MYOCARDIAL INFARCTION [None]
  - AORTIC DISORDER [None]
  - ARTERIOSCLEROSIS [None]
  - BLOOD GLUCOSE INCREASED [None]
  - BLOOD POTASSIUM DECREASED [None]
  - CHEST DISCOMFORT [None]
  - DILATATION VENTRICULAR [None]
  - DYSPNOEA [None]
  - HAEMOGLOBIN DECREASED [None]
  - INTERMITTENT CLAUDICATION [None]
  - OEDEMA PERIPHERAL [None]
  - PAIN [None]
  - PLATELET COUNT DECREASED [None]
  - RENAL FAILURE ACUTE [None]
  - RENAL FAILURE CHRONIC [None]
